FAERS Safety Report 7009245-8 (Version None)
Quarter: 2010Q3

REPORT INFORMATION
  Report Type: 
  Country: None (occurrence: None)
  Receive Date: 20100923
  Receipt Date: 20100914
  Transmission Date: 20110219
  Serious: Yes (Other)
  Sender: FDA-Public Use
  Company Number: GB-ASTRAZENECA-2010SE43294

PATIENT
  Sex: Female

DRUGS (4)
  1. BUPIVACAINE HCL [Suspect]
     Indication: ANAESTHESIA
     Route: 008
  2. LIDOCAINE [Suspect]
     Indication: ANAESTHESIA
     Route: 008
  3. FENTANYL CITRATE [Suspect]
     Indication: ANAESTHESIA
     Dosage: 100 UG
     Route: 008
  4. EPINEPHRINE [Suspect]
     Indication: ANAESTHESIA
     Dosage: 100 UG
     Route: 008

REACTIONS (2)
  - ANTEPARTUM HAEMORRHAGE [None]
  - INCORRECT ROUTE OF DRUG ADMINISTRATION [None]
